FAERS Safety Report 6790350-6 (Version None)
Quarter: 2010Q2

REPORT INFORMATION
  Report Type: 
  Country: None (occurrence: None)
  Receive Date: 20100624
  Receipt Date: 20100611
  Transmission Date: 20101027
  Serious: Yes (Hospitalization)
  Sender: FDA-Public Use
  Company Number: PHHY2010TW28827

PATIENT
  Sex: Female
  Weight: 44.8 kg

DRUGS (1)
  1. ACLASTA [Suspect]
     Dosage: 5MG/100ML
     Route: 042
     Dates: start: 20100429, end: 20100429

REACTIONS (5)
  - ASTHENIA [None]
  - HYPOCALCAEMIA [None]
  - HYPOPHOSPHATAEMIA [None]
  - MUSCLE SPASMS [None]
  - RESTLESSNESS [None]
